FAERS Safety Report 5821096-6 (Version None)
Quarter: 2008Q3

REPORT INFORMATION
  Report Type: 
  Country: None (occurrence: None)
  Receive Date: 20080724
  Receipt Date: 20080716
  Transmission Date: 20090109
  Serious: Yes (Hospitalization)
  Sender: FDA-Public Use
  Company Number: US-WATSON-2008-04291

PATIENT
  Age: 17 Year
  Sex: Male

DRUGS (7)
  1. ISONIAZID [Suspect]
     Indication: TUBERCULOSIS
     Dosage: UNK
     Route: 065
  2. RIFAMPIN [Suspect]
     Indication: TUBERCULOSIS
     Dosage: UNK
     Route: 065
  3. PYRAZINAMIDE [Suspect]
     Indication: TUBERCULOSIS
     Dosage: UNK
     Route: 065
  4. ETHAMBUTOL HCL [Suspect]
     Indication: TUBERCULOSIS
     Dosage: UNK
     Route: 065
  5. STAVUDINE [Suspect]
     Indication: HIV INFECTION
     Dosage: UNK
     Route: 065
  6. LAMIVUDINE [Suspect]
     Indication: HIV INFECTION
     Dosage: UNK
     Route: 065
  7. ABACAVIR [Suspect]
     Indication: HIV INFECTION
     Dosage: UNK
     Route: 065

REACTIONS (2)
  - CARDIAC TAMPONADE [None]
  - IMMUNE RECONSTITUTION SYNDROME [None]
